FAERS Safety Report 4786914-1 (Version None)
Quarter: 2005Q3

REPORT INFORMATION
  Report Type: 
  Country: None (occurrence: None)
  Receive Date: 20050930
  Receipt Date: 20050914
  Transmission Date: 20060218
  Serious: Yes (Hospitalization)
  Sender: FDA-Public Use
  Company Number: 2005PV002066

PATIENT
  Age: 63 Year
  Sex: Male
  Weight: 147.419 kg

DRUGS (19)
  1. SYMLIN [Suspect]
     Indication: DIABETES MELLITUS NON-INSULIN-DEPENDENT
     Dosage: 30 MCG; BID; SC
     Route: 058
     Dates: start: 20050629, end: 20050824
  2. LEVAQUIN [Suspect]
     Indication: DIABETIC FOOT INFECTION
     Dates: start: 20050824, end: 20050101
  3. ASPIRIN [Suspect]
     Indication: PROPHYLAXIS
     Dosage: 81 MG;QD
     Dates: end: 20050101
  4. PLAVIX [Suspect]
     Indication: PROPHYLAXIS
     Dosage: 75 MG; QD;
     Dates: end: 20050101
  5. NOVOLOG [Concomitant]
  6. LANTUS [Concomitant]
  7. AVANDIA [Concomitant]
  8. NISAPAN [Concomitant]
  9. TRAZODONE [Concomitant]
  10. OXAPROZIN [Concomitant]
  11. ALLOPURINOL [Concomitant]
  12. ATENOLOL [Concomitant]
  13. FOLIC ACID [Concomitant]
  14. FUROSEMIDE [Concomitant]
  15. ACTONEL [Concomitant]
  16. CALCIUM WITH D [Concomitant]
  17. ATACAND [Concomitant]
  18. AUGMENTIN '125' [Concomitant]
  19. LEVOXYL [Concomitant]

REACTIONS (11)
  - ASTHENIA [None]
  - DEHYDRATION [None]
  - FATIGUE [None]
  - GASTRITIS [None]
  - HYPOVOLAEMIA [None]
  - LOCALISED INFECTION [None]
  - NAUSEA [None]
  - OESOPHAGITIS [None]
  - PANCREATITIS ACUTE [None]
  - RENAL FAILURE ACUTE [None]
  - VOMITING [None]
